FAERS Safety Report 10039999 (Version 1)
Quarter: 2014Q1

REPORT INFORMATION
  Report Type: Spontaneous
  Country: CH (occurrence: CH)
  Receive Date: 20140326
  Receipt Date: 20140326
  Transmission Date: 20141002
  Serious: Yes (Other)
  Sender: FDA-Public Use
  Company Number: CH-ABBVIE-14P-151-1216263-00

PATIENT
  Age: 28 Year
  Sex: Male

DRUGS (10)
  1. KALETRA [Suspect]
     Indication: HIV INFECTION
     Dosage: 400 MG/100 MG
     Route: 048
     Dates: start: 20060125, end: 20061204
  2. COMBIVIR [Suspect]
     Indication: HIV INFECTION
     Dosage: 150 MG
     Route: 048
     Dates: start: 20021112, end: 20051107
  3. STOCRIN [Suspect]
     Indication: HIV INFECTION
     Route: 048
     Dates: start: 20021112, end: 20051107
  4. STOCRIN [Suspect]
     Dates: start: 20060125, end: 20060309
  5. STOCRIN [Suspect]
     Dates: start: 20061204, end: 200904
  6. KIVEXA [Suspect]
     Indication: HIV INFECTION
     Route: 048
     Dates: start: 20061204, end: 200904
  7. KIVEXA [Suspect]
     Dates: start: 200905
  8. INTELENCE [Suspect]
     Indication: HIV INFECTION
     Dosage: 200 MG
     Route: 048
     Dates: start: 20090501
  9. CO-LISINOPRIL [Concomitant]
     Indication: HYPERTENSION
     Route: 048
     Dates: start: 200504
  10. ALDOZONE [Concomitant]
     Indication: HYPERTENSION
     Dosage: 2.5 MG/25 MG
     Dates: start: 200511

REACTIONS (5)
  - Blood creatine phosphokinase abnormal [Not Recovered/Not Resolved]
  - Hypertransaminasaemia [Not Recovered/Not Resolved]
  - Amylase abnormal [Recovered/Resolved]
  - Rhabdomyolysis [Unknown]
  - Myalgia [Unknown]
